FAERS Safety Report 20853473 (Version 1)
Quarter: 2022Q2

REPORT INFORMATION
  Report Type: Spontaneous
  Country: CO (occurrence: CO)
  Receive Date: 20220520
  Receipt Date: 20220520
  Transmission Date: 20220721
  Serious: Yes (Other)
  Sender: FDA-Public Use
  Company Number: CO-PFIZER INC-202200660474

PATIENT
  Age: 76 Year
  Sex: Female

DRUGS (1)
  1. PALBOCICLIB [Suspect]
     Active Substance: PALBOCICLIB
     Indication: Breast cancer female
     Dosage: 125 MG, CYCLIC (FOR 21 DAYS AND RESTS FOR 7 DAYS)
     Route: 048
     Dates: start: 202202

REACTIONS (16)
  - Second primary malignancy [Unknown]
  - Tracheal cancer [Unknown]
  - Asthenopia [Recovering/Resolving]
  - Somnolence [Recovering/Resolving]
  - Nail disorder [Recovering/Resolving]
  - Salivary hypersecretion [Recovering/Resolving]
  - Oral mucosal exfoliation [Recovering/Resolving]
  - Thyroid disorder [Unknown]
  - Nervousness [Not Recovered/Not Resolved]
  - Blood pressure increased [Recovering/Resolving]
  - Hot flush [Recovering/Resolving]
  - Cough [Recovering/Resolving]
  - Mood altered [Unknown]
  - Affective disorder [Unknown]
  - Vision blurred [Recovering/Resolving]
  - Alopecia [Recovering/Resolving]
